FAERS Safety Report 19896184 (Version 1)
Quarter: 2021Q3

REPORT INFORMATION
  Report Type: Spontaneous
  Country: US (occurrence: US)
  Receive Date: 20210929
  Receipt Date: 20210929
  Transmission Date: 20211014
  Serious: No
  Sender: FDA-Public Use
  Company Number: US-PFIZER INC-2020406149

PATIENT
  Age: 77 Year
  Sex: Female

DRUGS (2)
  1. SUTENT [Interacting]
     Active Substance: SUNITINIB MALATE
     Dosage: 25 MG
  2. SUTENT [Suspect]
     Active Substance: SUNITINIB MALATE
     Dosage: 37.5 MG

REACTIONS (1)
  - Drug interaction [Unknown]
